FAERS Safety Report 21514661 (Version 2)
Quarter: 2022Q4

REPORT INFORMATION
  Report Type: Spontaneous
  Country: IT (occurrence: IT)
  Receive Date: 20221027
  Receipt Date: 20221124
  Transmission Date: 20230113
  Serious: Yes (Hospitalization)
  Sender: FDA-Public Use
  Company Number: IT-TEVA-2022-IT-2819384

PATIENT
  Age: 55 Year
  Sex: Male

DRUGS (3)
  1. LITHIUM [Suspect]
     Active Substance: LITHIUM
     Indication: Bipolar disorder
     Dosage: 10 DF ,LITHIUM-SULFATE: 83 MG; ADDITIONAL INFO: OVERDOSE
     Route: 065
  2. QUETIAPINE [Suspect]
     Active Substance: QUETIAPINE
     Indication: Bipolar disorder
     Dosage: 10 DF , QUETIAPINE: 300 MG; ADDITIONAL INFO: OVERDOSE
     Route: 065
  3. LORAZEPAM [Suspect]
     Active Substance: LORAZEPAM
     Indication: Bipolar disorder
     Dosage: 10 DF , LORAZEPAM: 2.50 MG; ADDITIONAL INFO: OVERDOSE
     Route: 065

REACTIONS (5)
  - Toxicity to various agents [Unknown]
  - Somnolence [Unknown]
  - Sinus tachycardia [Unknown]
  - Suicide attempt [Unknown]
  - Intentional overdose [Unknown]
